FAERS Safety Report 10169326 (Version 1)
Quarter: 2014Q2

REPORT INFORMATION
  Report Type: Spontaneous
  Country: US (occurrence: US)
  Receive Date: 20140513
  Receipt Date: 20140513
  Transmission Date: 20141212
  Serious: Yes (Other)
  Sender: FDA-Public Use
  Company Number: US-RB-067046-14

PATIENT
  Age: 28 Year
  Sex: Male

DRUGS (1)
  1. SUBOXONE FILM [Suspect]
     Indication: DRUG DEPENDENCE
     Dosage: SUBOXONE FILM; THE PATIENT WAS CUTTING THE FILM
     Route: 060
     Dates: start: 201312

REACTIONS (6)
  - Intentional underdose [Not Recovered/Not Resolved]
  - Wrong technique in drug usage process [Not Recovered/Not Resolved]
  - Feeling abnormal [Recovered/Resolved]
  - Testicular pain [Recovered/Resolved]
  - Testicular torsion [Recovered/Resolved]
  - Procedural pain [Not Recovered/Not Resolved]
